FAERS Safety Report 15868666 (Version 2)
Quarter: 2019Q1

REPORT INFORMATION
  Report Type: Report from Study
  Country: UG (occurrence: UG)
  Receive Date: 20190125
  Receipt Date: 20190212
  Transmission Date: 20190417
  Serious: Yes (Death, Other)
  Sender: FDA-Public Use
  Company Number: UG-VIIV HEALTHCARE LIMITED-UG2018GSK143246

PATIENT
  Age: 12 Week

DRUGS (3)
  1. DOLUTEGRAVIR [Suspect]
     Active Substance: DOLUTEGRAVIR
     Indication: HIV INFECTION
     Dosage: 50 MG, QD
     Route: 064
     Dates: start: 20180328
  2. EFAVIRENZ. [Suspect]
     Active Substance: EFAVIRENZ
     Indication: HIV INFECTION
     Dosage: UNK
     Route: 064
     Dates: start: 20180418
  3. NEVIRAPINE SUSPENSION [Concomitant]
     Indication: HIV INFECTION
     Dosage: 1.5 ML, UNK
     Route: 048
     Dates: start: 20180510

REACTIONS (1)
  - Sudden infant death syndrome [Fatal]

NARRATIVE: CASE EVENT DATE: 20180806
